FAERS Safety Report 5485672-5 (Version None)
Quarter: 2007Q4

REPORT INFORMATION
  Report Type: 
  Country: None (occurrence: None)
  Receive Date: 20071011
  Receipt Date: 20071011
  Transmission Date: 20080405
  Serious: Yes (Other)
  Sender: FDA-Public Use
  Company Number: None

PATIENT
  Age: 44 Year
  Sex: Female
  Weight: 102.0593 kg

DRUGS (2)
  1. CYMBALTA [Suspect]
     Indication: DEPRESSION
     Dosage: 1 TABLET  ONCE A DAY  PO
     Route: 048
     Dates: start: 20050801
  2. CYMBALTA [Suspect]
     Indication: MIGRAINE
     Dosage: 1 TABLET  ONCE A DAY  PO
     Route: 048
     Dates: start: 20050801

REACTIONS (8)
  - ALOPECIA [None]
  - DEPRESSION [None]
  - DRUG WITHDRAWAL SYNDROME [None]
  - FATIGUE [None]
  - HOT FLUSH [None]
  - LOSS OF LIBIDO [None]
  - MOOD SWINGS [None]
  - NERVOUS SYSTEM DISORDER [None]
